FAERS Safety Report 5202808-1 (Version None)
Quarter: 2006Q4

REPORT INFORMATION
  Report Type: 
  Country: None (occurrence: None)
  Receive Date: 20061018
  Receipt Date: 20060721
  Transmission Date: 20070319
  Serious: Yes (Hospitalization)
  Sender: FDA-Public Use
  Company Number: 06P-163-0339028-00

PATIENT
  Age: 30 Year
  Sex: Female

DRUGS (2)
  1. KALETRA [Suspect]
     Indication: HIV INFECTION
     Dosage: 6 CAPSULE, 1 IN 1 D, PER ORAL
     Route: 048
     Dates: start: 20060411
  2. EPZICOM [Suspect]
     Indication: HIV INFECTION
     Dosage: 1 TABLET, 1 IN 1 D, PER ORAL
     Route: 048
     Dates: start: 20060411

REACTIONS (2)
  - ABDOMINAL PAIN [None]
  - PYREXIA [None]
